APPROVED DRUG PRODUCT: FLUPHENAZINE DECANOATE
Active Ingredient: FLUPHENAZINE DECANOATE
Strength: 25MG/ML
Dosage Form/Route: INJECTABLE;INJECTION
Application: A074795 | Product #001
Applicant: TEVA PARENTERAL MEDICINES INC
Approved: Sep 10, 1996 | RLD: No | RS: No | Type: DISCN